FAERS Safety Report 4370339-7 (Version None)
Quarter: 2004Q2

REPORT INFORMATION
  Report Type: 
  Country: None (occurrence: None)
  Receive Date: 20040603
  Receipt Date: 20040319
  Transmission Date: 20050107
  Serious: No
  Sender: FDA-Public Use
  Company Number: US-BRISTOL-MYERS SQUIBB COMPANY-12537502

PATIENT
  Age: 32 Year
  Sex: Male
  Weight: 82 kg

DRUGS (1)
  1. ABILIFY [Suspect]
     Indication: APATHY
     Route: 048
     Dates: start: 20040311

REACTIONS (2)
  - DEPRESSION [None]
  - PERSONALITY DISORDER [None]
